FAERS Safety Report 9753888 (Version 2)
Quarter: 2015Q3

REPORT INFORMATION
  Report Type: Spontaneous
  Country: US (occurrence: US)
  Receive Date: 20131213
  Receipt Date: 20150805
  Transmission Date: 20151125
  Serious: No
  Sender: FDA-Public Use
  Company Number: US-GILEAD-2010-0027736

PATIENT
  Age: 52 Year
  Sex: Female
  Weight: 68.49 kg

DRUGS (23)
  1. SPIRONOLACTONE. [Concomitant]
     Active Substance: SPIRONOLACTONE
  2. PLAVIX [Concomitant]
     Active Substance: CLOPIDOGREL BISULFATE
  3. AMBIEN [Concomitant]
     Active Substance: ZOLPIDEM TARTRATE
  4. IRON [Concomitant]
     Active Substance: IRON
  5. MULTIVITAMIN [Concomitant]
     Active Substance: VITAMINS
  6. SODIUM CHLORIDE. [Concomitant]
     Active Substance: SODIUM CHLORIDE
  7. TYLENOL [Concomitant]
     Active Substance: ACETAMINOPHEN
  8. FOLIC ACID. [Concomitant]
     Active Substance: FOLIC ACID
  9. OXYGEN. [Concomitant]
     Active Substance: OXYGEN
  10. SYNTHROID [Concomitant]
     Active Substance: LEVOTHYROXINE SODIUM
  11. METAMUCIL POWDER [Concomitant]
  12. FLOLAN [Concomitant]
     Active Substance: EPOPROSTENOL SODIUM
  13. LASIX [Concomitant]
     Active Substance: FUROSEMIDE
  14. ZOCOR [Concomitant]
     Active Substance: SIMVASTATIN
  15. OMEPRAZOLE. [Concomitant]
     Active Substance: OMEPRAZOLE
  16. LETAIRIS [Suspect]
     Active Substance: AMBRISENTAN
     Indication: PULMONARY ARTERIAL HYPERTENSION
     Route: 048
     Dates: start: 20100309
  17. METHOTREXATE [Concomitant]
     Active Substance: METHOTREXATE
  18. LYRICA [Concomitant]
     Active Substance: PREGABALIN
  19. ASPIRIN. [Concomitant]
     Active Substance: ASPIRIN
  20. FISH OIL [Concomitant]
     Active Substance: FISH OIL
  21. IMODIUM [Concomitant]
     Active Substance: LOPERAMIDE HYDROCHLORIDE
  22. ZOFRAN [Concomitant]
     Active Substance: ONDANSETRON HYDROCHLORIDE
  23. ZYRTEC [Concomitant]
     Active Substance: CETIRIZINE HYDROCHLORIDE

REACTIONS (4)
  - Headache [Unknown]
  - Feeling cold [Unknown]
  - Dyspnoea [Unknown]
  - Oedema [Unknown]
